FAERS Safety Report 15401413 (Version 1)
Quarter: 2018Q3

REPORT INFORMATION
  Report Type: Spontaneous
  Country: US (occurrence: US)
  Receive Date: 20180914
  Receipt Date: 20180914
  Transmission Date: 20181010
  Serious: Yes (Congenital Anomaly, Other)
  Sender: FDA-Public Use
  Company Number: None

PATIENT
  Age: 70 Year
  Sex: Female
  Weight: 96.3 kg

DRUGS (9)
  1. JARDIANCE [Suspect]
     Active Substance: EMPAGLIFLOZIN
     Indication: DIABETES MELLITUS
     Dosage: ?          QUANTITY:21 TABLET(S);?
     Route: 048
     Dates: start: 20180801, end: 20180820
  2. METFORMIN [Concomitant]
     Active Substance: METFORMIN HYDROCHLORIDE
  3. LANTUS [Concomitant]
     Active Substance: INSULIN GLARGINE
  4. METOPROLOL. [Concomitant]
     Active Substance: METOPROLOL
  5. CRESTOR [Concomitant]
     Active Substance: ROSUVASTATIN CALCIUM
  6. NOVOLOG [Suspect]
     Active Substance: INSULIN ASPART
  7. NEURATIVE [Concomitant]
  8. VALSARTAN HCTZ [Concomitant]
     Active Substance: HYDROCHLOROTHIAZIDE\VALSARTAN
  9. DILTIAZEM. [Concomitant]
     Active Substance: DILTIAZEM

REACTIONS (5)
  - Vertigo [None]
  - Sinusitis [None]
  - Dizziness [None]
  - Urinary tract infection [None]
  - Dehydration [None]

NARRATIVE: CASE EVENT DATE: 20180801
